FAERS Safety Report 16225509 (Version 1)
Quarter: 2019Q2

REPORT INFORMATION
  Report Type: Spontaneous
  Country: US (occurrence: US)
  Receive Date: 20190422
  Receipt Date: 20190422
  Transmission Date: 20190711
  Serious: No
  Sender: FDA-Public Use
  Company Number: US-AMNEAL PHARMACEUTICALS-2018AMN00227

PATIENT
  Age: 75 Year
  Sex: Female

DRUGS (1)
  1. MECLIZINE HYDROCHLORIDE. [Suspect]
     Active Substance: MECLIZINE HYDROCHLORIDE
     Indication: DIZZINESS
     Dosage: 1 TABLETS, 1X/WEEK
     Route: 048
     Dates: start: 201803

REACTIONS (1)
  - Inappropriate affect [Recovered/Resolved]
